FAERS Safety Report 9448136 (Version 2)
Quarter: 2013Q3

REPORT INFORMATION
  Report Type: Spontaneous
  Country: NL (occurrence: NL)
  Receive Date: 20130808
  Receipt Date: 20130814
  Transmission Date: 20140515
  Serious: Yes (Life-Threatening, Hospitalization)
  Sender: FDA-Public Use
  Company Number: NL-NOVOPROD-384586

PATIENT
  Age: 63 Year
  Sex: Female
  Weight: 84 kg

DRUGS (7)
  1. LEVEMIR FLEXPEN [Suspect]
     Indication: TYPE 2 DIABETES MELLITUS
     Dosage: SINGLE
     Route: 058
     Dates: start: 20130327
  2. NOVORAPID FLEXPEN [Suspect]
     Indication: TYPE 2 DIABETES MELLITUS
     Dosage: UNK
     Route: 058
     Dates: start: 20130327
  3. TOLBUTAMIDE [Suspect]
     Indication: TYPE 2 DIABETES MELLITUS
     Dosage: 2 G, QID
     Route: 048
     Dates: start: 20130106, end: 20130416
  4. METFORMIN [Concomitant]
     Indication: TYPE 2 DIABETES MELLITUS
     Dosage: 500 MG, QID
     Route: 048
  5. HYDROCHLOROTHIAZIDE [Concomitant]
     Dosage: 5 MG, SINGLE
     Route: 048
  6. OMEPRAZOLE [Concomitant]
     Dosage: 20 MG, SINGLE
     Route: 048
  7. ENALAPRIL [Concomitant]
     Dosage: UNK
     Route: 065

REACTIONS (10)
  - Liver disorder [Not Recovered/Not Resolved]
  - Feeling cold [Not Recovered/Not Resolved]
  - Thinking abnormal [Not Recovered/Not Resolved]
  - Crying [Not Recovered/Not Resolved]
  - Hypersomnia [Not Recovered/Not Resolved]
  - Suicidal ideation [Not Recovered/Not Resolved]
  - Fatigue [Not Recovered/Not Resolved]
  - Blood glucose increased [Not Recovered/Not Resolved]
  - Injection site pruritus [Not Recovered/Not Resolved]
  - Nausea [Not Recovered/Not Resolved]
